APPROVED DRUG PRODUCT: DIOVAN HCT
Active Ingredient: HYDROCHLOROTHIAZIDE; VALSARTAN
Strength: 25MG;160MG
Dosage Form/Route: TABLET;ORAL
Application: N020818 | Product #003 | TE Code: AB
Applicant: NOVARTIS PHARMACEUTICALS CORP
Approved: Jan 17, 2002 | RLD: Yes | RS: No | Type: RX